APPROVED DRUG PRODUCT: ATRACURIUM BESYLATE PRESERVATIVE FREE
Active Ingredient: ATRACURIUM BESYLATE
Strength: 10MG/ML
Dosage Form/Route: INJECTABLE;INJECTION
Application: A074633 | Product #001
Applicant: HOSPIRA INC
Approved: Dec 23, 1996 | RLD: No | RS: No | Type: DISCN